FAERS Safety Report 8466492-6 (Version None)
Quarter: 2012Q2

REPORT INFORMATION
  Report Type: 
  Country: None (occurrence: None)
  Receive Date: 20120626
  Receipt Date: 20120614
  Transmission Date: 20120825
  Serious: No
  Sender: FDA-Public Use
  Company Number: US-ASTRAZENECA-2012SE40513

PATIENT
  Age: 57 Year
  Sex: Female
  Weight: 37.2 kg

DRUGS (2)
  1. BLOOD PRESSURE MEDICINE [Concomitant]
  2. FASLODEX [Suspect]
     Indication: BREAST CANCER
     Route: 030
     Dates: start: 20120417

REACTIONS (5)
  - BURNING SENSATION [None]
  - SENSORY DISTURBANCE [None]
  - HYPOAESTHESIA [None]
  - PAIN IN EXTREMITY [None]
  - ABASIA [None]
